FAERS Safety Report 9520709 (Version 2)
Quarter: 2013Q3

REPORT INFORMATION
  Report Type: Spontaneous
  Country: GB (occurrence: None)
  Receive Date: 20130911
  Receipt Date: 20130924
  Transmission Date: 20140515
  Serious: Yes (Other)
  Sender: FDA-Public Use
  Company Number: AUR-APL-2013-07435

PATIENT
  Age: 61 Year
  Sex: Female
  Weight: 76.2 kg

DRUGS (3)
  1. ALENDRONIC ACID [Suspect]
     Indication: OSTEOPOROSIS
     Dosage: (1 DOSAGE FORMS, 1 IN 1
     Route: 048
  2. ADCAL (CALCET / 00637401/ [Concomitant]
  3. CO-CODAMOL (PANADEINE CO) [Concomitant]

REACTIONS (3)
  - Feeling abnormal [None]
  - Vertigo [None]
  - Feeling drunk [None]
